FAERS Safety Report 5281362-2 (Version None)
Quarter: 2007Q1

REPORT INFORMATION
  Report Type: 
  Country: None (occurrence: None)
  Receive Date: 20070323
  Receipt Date: 20070323
  Transmission Date: 20070707
  Serious: Yes (Hospitalization)
  Sender: FDA-Public Use
  Company Number: None

PATIENT
  Age: 51 Year
  Sex: Female

DRUGS (1)
  1. BONIVA [Suspect]
     Indication: OSTEOPOROSIS
     Dosage: 3MG Q 3 MONTHS IV
     Route: 042
     Dates: start: 20070208, end: 20070208

REACTIONS (2)
  - PAIN IN EXTREMITY [None]
  - SWELLING [None]
